FAERS Safety Report 17605201 (Version 1)
Quarter: 2020Q1

REPORT INFORMATION
  Report Type: Spontaneous
  Country: CA (occurrence: CA)
  Receive Date: 20200331
  Receipt Date: 20200331
  Transmission Date: 20200409
  Serious: Yes (Death, Hospitalization, Other)
  Sender: FDA-Public Use
  Company Number: CA-GILEAD-2020-0457038

PATIENT
  Age: 58 Year
  Sex: Male
  Weight: 67.2 kg

DRUGS (9)
  1. INSULIN LISPRO [Concomitant]
     Active Substance: INSULIN LISPRO
  2. METFORMIN [Concomitant]
     Active Substance: METFORMIN HYDROCHLORIDE
  3. CANDESARTAN. [Concomitant]
     Active Substance: CANDESARTAN
  4. THIAMINE. [Concomitant]
     Active Substance: THIAMINE
  5. LIPASE [Concomitant]
     Active Substance: LIPASE
  6. EPCLUSA [Suspect]
     Active Substance: SOFOSBUVIR\VELPATASVIR
     Indication: PRODUCT USED FOR UNKNOWN INDICATION
     Dosage: UNK
     Route: 065
     Dates: start: 20180404
  7. INSULIN [Concomitant]
     Active Substance: INSULIN NOS
  8. AMITRIPTYLINE [Concomitant]
     Active Substance: AMITRIPTYLINE
  9. ACETAMINOPHEN. [Concomitant]
     Active Substance: ACETAMINOPHEN

REACTIONS (2)
  - Diabetes mellitus inadequate control [Not Recovered/Not Resolved]
  - Death [Fatal]

NARRATIVE: CASE EVENT DATE: 20180507
